FAERS Safety Report 7341643-5 (Version None)
Quarter: 2011Q1

REPORT INFORMATION
  Report Type: 
  Country: None (occurrence: None)
  Receive Date: 20110309
  Receipt Date: 20110304
  Transmission Date: 20110831
  Serious: Yes (Other)
  Sender: FDA-Public Use
  Company Number: DE-ABBOTT-10P-062-0671342-00

PATIENT
  Sex: Male
  Weight: 76 kg

DRUGS (7)
  1. INFLIXIMAB [Suspect]
     Indication: PRODUCT USED FOR UNKNOWN INDICATION
  2. INDOMETACIN [Concomitant]
  3. INDOMETACIN [Concomitant]
     Indication: UVEITIS
     Route: 048
  4. GABAPENTIN [Concomitant]
     Indication: PRODUCT USED FOR UNKNOWN INDICATION
  5. HUMIRA [Interacting]
     Indication: ANKYLOSING SPONDYLITIS
     Route: 058
     Dates: start: 20100510, end: 20101101
  6. HUMIRA [Interacting]
  7. MULTIPLE SCLEROSIS DRUGS [Interacting]
     Indication: MULTIPLE SCLEROSIS

REACTIONS (5)
  - SYRINGOMYELIA [None]
  - DRUG INTERACTION [None]
  - SENSORY DISTURBANCE [None]
  - DEPRESSION [None]
  - MULTIPLE SCLEROSIS [None]
